FAERS Safety Report 4734638-9 (Version None)
Quarter: 2005Q3

REPORT INFORMATION
  Report Type: 
  Country: None (occurrence: None)
  Receive Date: 20050804
  Receipt Date: 20050713
  Transmission Date: 20060218
  Serious: Yes (Other)
  Sender: FDA-Public Use
  Company Number: US-MERCK-0507USA01855

PATIENT
  Age: 25 Year
  Sex: Male
  Weight: 84 kg

DRUGS (4)
  1. PROPECIA [Suspect]
     Indication: ALOPECIA
     Route: 048
     Dates: start: 20050608, end: 20050618
  2. TOPAMAX [Concomitant]
     Route: 048
     Dates: start: 20020601
  3. LAMICTAL [Concomitant]
     Indication: CONVULSION
     Route: 048
     Dates: start: 20040601
  4. ATIVAN [Concomitant]
     Route: 065

REACTIONS (1)
  - GRAND MAL CONVULSION [None]
